FAERS Safety Report 6254956-5 (Version None)
Quarter: 2009Q3

REPORT INFORMATION
  Report Type: 
  Country: None (occurrence: None)
  Receive Date: 20090702
  Receipt Date: 20090624
  Transmission Date: 20100115
  Serious: Yes (Hospitalization)
  Sender: FDA-Public Use
  Company Number: FR-MERCK-0906FRA00101

PATIENT
  Age: 81 Year
  Sex: Male

DRUGS (17)
  1. PRIMAXIN [Suspect]
     Indication: BRONCHITIS
     Route: 042
     Dates: start: 20090429, end: 20090505
  2. FLUINDIONE [Suspect]
     Indication: ATRIAL FIBRILLATION
     Route: 048
     Dates: start: 20060602, end: 20090503
  3. LEVOFLOXACIN [Suspect]
     Indication: BRONCHITIS
     Route: 048
     Dates: start: 20090327, end: 20090330
  4. PIPERACILLIN SODIUM AND TAZOBACTAM SODIUM [Suspect]
     Indication: BRONCHITIS
     Route: 042
     Dates: start: 20090403, end: 20090417
  5. AMIKACIN SULFATE [Suspect]
     Indication: BRONCHITIS
     Route: 042
     Dates: start: 20090403, end: 20090408
  6. BUDESONIDE AND FORMOTEROL FUMARATE [Suspect]
     Indication: CHRONIC OBSTRUCTIVE PULMONARY DISEASE
     Dates: start: 20090330
  7. TERBUTALINE SULFATE [Suspect]
     Indication: CHRONIC OBSTRUCTIVE PULMONARY DISEASE
     Route: 065
     Dates: start: 20090330
  8. IPRATROPIUM BROMIDE [Suspect]
     Indication: CHRONIC OBSTRUCTIVE PULMONARY DISEASE
     Route: 065
     Dates: start: 20090330
  9. FUROSEMIDE [Suspect]
     Indication: CARDIAC FAILURE
     Route: 065
     Dates: start: 20090327, end: 20090301
  10. FUROSEMIDE [Suspect]
     Route: 065
     Dates: start: 20090301, end: 20090401
  11. AMIODARONE HYDROCHLORIDE [Suspect]
     Indication: VENTRICULAR TACHYCARDIA
     Route: 065
     Dates: start: 20090327, end: 20090429
  12. NIFEDIPINE [Suspect]
     Indication: HYPERTENSION
     Route: 048
     Dates: end: 20090327
  13. AMLODIPINE BESYLATE [Suspect]
     Indication: HYPERTENSION
     Route: 048
     Dates: start: 20090328, end: 20090331
  14. ALBUTEROL SULFATE [Concomitant]
     Route: 065
  15. RAMIPRIL [Concomitant]
     Route: 065
  16. NITROGLYCERIN [Concomitant]
     Route: 065
  17. AMILORIDE HYDROCHLORIDE AND HYDROCHLOROTHIAZIDE [Concomitant]
     Route: 065

REACTIONS (2)
  - AGRANULOCYTOSIS [None]
  - LYMPHOPENIA [None]
